FAERS Safety Report 12206605 (Version 1)
Quarter: 2016Q1

REPORT INFORMATION
  Report Type: Spontaneous
  Country: TR (occurrence: US)
  Receive Date: 20160324
  Receipt Date: 20160324
  Transmission Date: 20160526
  Serious: Yes (Hospitalization)
  Sender: FDA-Public Use
  Company Number: TR-SCIEGEN PHARMACEUTICALS INC-2016SCILIT00045

PATIENT
  Age: 59 Year
  Sex: Male

DRUGS (3)
  1. SPIRONOLACTONE. [Suspect]
     Active Substance: SPIRONOLACTONE
     Indication: PRODUCT USED FOR UNKNOWN INDICATION
     Dosage: 50 MG, UNK
     Route: 065
  2. ESCITALOPRAM [Suspect]
     Active Substance: ESCITALOPRAM OXALATE
     Indication: PRODUCT USED FOR UNKNOWN INDICATION
     Dosage: 10 MG, QD
     Route: 065
  3. HYDROCHLOROTHIAZIDE TABLETS [Suspect]
     Active Substance: HYDROCHLOROTHIAZIDE
     Indication: PRODUCT USED FOR UNKNOWN INDICATION
     Dosage: 50 MG, UNK
     Route: 065

REACTIONS (8)
  - Inappropriate antidiuretic hormone secretion [Recovered/Resolved]
  - Dyspnoea [Unknown]
  - Hallucination [Unknown]
  - Hypercapnia [Unknown]
  - Confusional state [Unknown]
  - Hypoxia [Unknown]
  - Somnolence [Unknown]
  - Hyponatraemia [Recovered/Resolved]
